FAERS Safety Report 4824390-0 (Version None)
Quarter: 2005Q4

REPORT INFORMATION
  Report Type: 
  Country: None (occurrence: None)
  Receive Date: 20051108
  Receipt Date: 20051028
  Transmission Date: 20060501
  Serious: Yes (Other)
  Sender: FDA-Public Use
  Company Number: 2005149626

PATIENT
  Age: 31 Year
  Sex: Male

DRUGS (24)
  1. NELFINAVIR MESILATE (NELFINAVIR MESILATE) [Suspect]
     Indication: HIV INFECTION
  2. INDINAVIR (INDINAVIR) [Suspect]
     Indication: HIV INFECTION
  3. LAMIVUDINE/ZIDOVUDINE (LAMIVUDINE, ZIDOVUDINE) [Suspect]
     Indication: HIV INFECTION
  4. RIFABUTIN [Concomitant]
  5. CEFAZOLIN [Concomitant]
  6. AMIKACIN [Concomitant]
  7. SULFAMETHOXAZOLE + TRIMETHOPRIM [Concomitant]
  8. ETHAMBUTOL [Concomitant]
  9. DAPSONE [Concomitant]
  10. CLOFAZIMINE [Concomitant]
  11. CLINDAMYCIN [Concomitant]
  12. CIPROFLOXACIN [Concomitant]
  13. FLUCONAZOLE [Concomitant]
  14. METRONIDAZOLE [Concomitant]
  15. HEPARIN [Concomitant]
  16. ALBUTEROL [Concomitant]
  17. LORAZEPAM [Concomitant]
  18. PREDISONE [Concomitant]
  19. METOPROLOL [Concomitant]
  20. HYDROMORPHONE [Concomitant]
  21. CLARITHROMYCIN [Concomitant]
  22. AZITHROMYCIN [Concomitant]
  23. PENTAMIDINE [Concomitant]
  24. ERYTHROMYCIN [Concomitant]

REACTIONS (3)
  - ELECTROCARDIOGRAM QT PROLONGED [None]
  - TORSADE DE POINTES [None]
  - VENTRICULAR TACHYCARDIA [None]
